FAERS Safety Report 9216932 (Version 3)
Quarter: 2013Q3

REPORT INFORMATION
  Report Type: Spontaneous
  Country: US (occurrence: US)
  Receive Date: 20130408
  Receipt Date: 20130709
  Transmission Date: 20140515
  Serious: Yes (Other)
  Sender: FDA-Public Use
  Company Number: US-INCYTE CORPORATION-2013IN000654

PATIENT
  Age: 76 Year
  Sex: Male
  Weight: 83.9 kg

DRUGS (9)
  1. JAKAFI [Suspect]
     Indication: MYELOFIBROSIS
     Dosage: 15 MG, QD (M, W, F AFTER DIALYSIS)
     Dates: start: 201207
  2. BENICAR [Concomitant]
  3. CARDURA [Concomitant]
  4. COREG [Concomitant]
  5. LASIX [Concomitant]
  6. PLAVIX [Concomitant]
  7. NTG [Concomitant]
  8. IMDUR [Concomitant]
  9. HUMULIN N [Concomitant]

REACTIONS (2)
  - Cardiac failure congestive [Unknown]
  - Iron overload [Unknown]
